FAERS Safety Report 7894270-5 (Version None)
Quarter: 2011Q4

REPORT INFORMATION
  Report Type: 
  Country: None (occurrence: None)
  Receive Date: 20111104
  Receipt Date: 20111102
  Transmission Date: 20120403
  Serious: Yes (Other)
  Sender: FDA-Public Use
  Company Number: GR-ROCHE-1009119

PATIENT
  Age: 47 Year
  Sex: Male

DRUGS (3)
  1. CISPLATIN [Concomitant]
     Indication: LUNG ADENOCARCINOMA
  2. ALIMTA [Concomitant]
     Indication: LUNG ADENOCARCINOMA
  3. AVASTIN [Suspect]
     Indication: LUNG ADENOCARCINOMA

REACTIONS (1)
  - OMENTAL INFARCTION [None]
